FAERS Safety Report 17162054 (Version 1)
Quarter: 2019Q4

REPORT INFORMATION
  Report Type: Spontaneous
  Country: US (occurrence: US)
  Receive Date: 20191215
  Receipt Date: 20191215
  Transmission Date: 20200122
  Serious: Yes (Life-Threatening, Hospitalization, Disabling)
  Sender: FDA-Public Use
  Company Number: None

PATIENT
  Age: 74 Year
  Sex: Female
  Weight: 53.07 kg

DRUGS (1)
  1. LEVAQUIN [Suspect]
     Active Substance: LEVOFLOXACIN
     Route: 048
     Dates: start: 20191104, end: 20191105

REACTIONS (6)
  - Anxiety [None]
  - Suicidal ideation [None]
  - Chills [None]
  - Tremor [None]
  - Dyspnoea [None]
  - Depression [None]

NARRATIVE: CASE EVENT DATE: 20191104
